FAERS Safety Report 5986408-1 (Version None)
Quarter: 2008Q4

REPORT INFORMATION
  Report Type: 
  Country: None (occurrence: None)
  Receive Date: 20081209
  Receipt Date: 20081201
  Transmission Date: 20090506
  Serious: Yes (Hospitalization, Other)
  Sender: FDA-Public Use
  Company Number: US-BAYER-200821519NA

PATIENT
  Age: 60 Year
  Sex: Male
  Weight: 122 kg

DRUGS (7)
  1. NEXAVAR [Suspect]
     Indication: RENAL CELL CARCINOMA
     Dosage: TOTAL DAILY DOSE: 800 MG  UNIT DOSE: 200 MG
     Route: 048
     Dates: start: 20080214
  2. WARFARIN SODIUM [Concomitant]
  3. METOPROLOL TARTRATE [Concomitant]
  4. RAMIPRIL [Concomitant]
  5. NEXIUM [Concomitant]
  6. FLUROSIMIDE [Concomitant]
  7. OXYCODINE [Concomitant]

REACTIONS (3)
  - ATRIAL FIBRILLATION [None]
  - CARDIAC FAILURE CONGESTIVE [None]
  - VENTRICULAR ARRHYTHMIA [None]
